FAERS Safety Report 6099850-8 (Version None)
Quarter: 2009Q1

REPORT INFORMATION
  Report Type: 
  Country: None (occurrence: None)
  Receive Date: 20090303
  Receipt Date: 20090225
  Transmission Date: 20090719
  Serious: Yes (Death, Other)
  Sender: FDA-Public Use
  Company Number: PHHY2008MX11223

PATIENT
  Age: 78 Year
  Sex: Male

DRUGS (1)
  1. DIOVAN HCT [Suspect]
     Indication: HYPERTENSION
     Dosage: 1 TABLET (160/25MG) PER DAY
     Route: 048
     Dates: start: 20040101

REACTIONS (3)
  - CARDIO-RESPIRATORY ARREST [None]
  - HEADACHE [None]
  - HYPERGLYCAEMIA [None]
